FAERS Safety Report 14425201 (Version 3)
Quarter: 2018Q1

REPORT INFORMATION
  Report Type: Spontaneous
  Country: US (occurrence: US)
  Receive Date: 20180123
  Receipt Date: 20180302
  Transmission Date: 20180509
  Serious: Yes (Death)
  Sender: FDA-Public Use
  Company Number: US-OMEROS CORPORATION-2018OME00002

PATIENT
  Age: 80 Year
  Sex: Female

DRUGS (2)
  1. OMIDRIA [Suspect]
     Active Substance: KETOROLAC\PHENYLEPHRINE
     Dosage: UNK
     Dates: start: 20160822, end: 20160822
  2. OMIDRIA [Suspect]
     Active Substance: KETOROLAC\PHENYLEPHRINE
     Dosage: UNK
     Dates: start: 20160809, end: 20160809

REACTIONS (1)
  - Death [Fatal]

NARRATIVE: CASE EVENT DATE: 20170224
